FAERS Safety Report 7604050-3 (Version None)
Quarter: 2011Q3

REPORT INFORMATION
  Report Type: 
  Country: None (occurrence: None)
  Receive Date: 20110712
  Receipt Date: 20110627
  Transmission Date: 20111222
  Serious: Yes (Hospitalization)
  Sender: FDA-Public Use
  Company Number: IN-WATSON-2011-10093

PATIENT
  Age: 55 Year
  Sex: Female

DRUGS (2)
  1. VERAPAMIL HCL [Suspect]
     Indication: SUICIDE ATTEMPT
     Dosage: 40 MG, UNK
     Route: 048
  2. METOPROLOL TARTRATE [Suspect]
     Indication: SUICIDE ATTEMPT
     Dosage: 50 MG, UNK
     Route: 048

REACTIONS (2)
  - ATRIOVENTRICULAR BLOCK SECOND DEGREE [None]
  - OPTIC ISCHAEMIC NEUROPATHY [None]
